FAERS Safety Report 9049401 (Version 2)
Quarter: 2013Q1

REPORT INFORMATION
  Report Type: Spontaneous
  Country: US (occurrence: US)
  Receive Date: 20130205
  Receipt Date: 20130222
  Transmission Date: 20140127
  Serious: No
  Sender: FDA-Public Use
  Company Number: US-PFIZER INC-2013043491

PATIENT
  Age: 84 Year
  Sex: Female
  Weight: 82 kg

DRUGS (3)
  1. LIPITOR [Suspect]
     Indication: BLOOD CHOLESTEROL INCREASED
     Dosage: 1 DF, 1X/DAY
     Route: 048
     Dates: end: 201205
  2. ACCUPRIL [Suspect]
     Indication: HYPERTENSION
     Dosage: 40 MG, 1X/DAY
     Route: 048
  3. ACCUPRIL [Suspect]
     Dosage: 20 MG, 1X/DAY
     Route: 048

REACTIONS (6)
  - Drug ineffective [Unknown]
  - Musculoskeletal disorder [Unknown]
  - Myalgia [Unknown]
  - Hypertension [Unknown]
  - Drug dispensing error [Unknown]
  - Back pain [Not Recovered/Not Resolved]
